FAERS Safety Report 15325943 (Version 1)
Quarter: 2018Q3

REPORT INFORMATION
  Report Type: Report from Study
  Country: TR (occurrence: TR)
  Receive Date: 20180828
  Receipt Date: 20180828
  Transmission Date: 20181010
  Serious: Yes (Death, Hospitalization)
  Sender: FDA-Public Use
  Company Number: TR-MYLANLABS-2018M1063619

PATIENT
  Sex: Male

DRUGS (1)
  1. METFORMIN [Suspect]
     Active Substance: METFORMIN HYDROCHLORIDE
     Indication: PRODUCT USED FOR UNKNOWN INDICATION
     Dosage: 2631 MG/KG; OVERDOSE
     Route: 065

REACTIONS (6)
  - Gastrointestinal disorder [Unknown]
  - Completed suicide [Fatal]
  - Lactic acidosis [Fatal]
  - Intentional overdose [Fatal]
  - Toxicity to various agents [Fatal]
  - Shock [Fatal]
